FAERS Safety Report 5251228-2 (Version None)
Quarter: 2007Q1

REPORT INFORMATION
  Report Type: 
  Country: None (occurrence: None)
  Receive Date: 20070228
  Receipt Date: 20061211
  Transmission Date: 20070707
  Serious: No
  Sender: FDA-Public Use
  Company Number: US-GLAXOSMITHKLINE-A0631148A

PATIENT
  Age: 46 Year
  Sex: Female

DRUGS (7)
  1. LAMICTAL [Suspect]
     Indication: BIPOLAR DISORDER
     Dosage: 150MG PER DAY
     Route: 048
     Dates: start: 20060101
  2. PROVIGIL [Concomitant]
  3. FLONASE [Concomitant]
  4. ALLEGRA [Concomitant]
  5. ZOVIA 1/35E-21 [Concomitant]
  6. EFFEXOR [Concomitant]
  7. CORTISONE ACETATE [Concomitant]

REACTIONS (2)
  - ECZEMA [None]
  - SKIN ULCER [None]
